FAERS Safety Report 15617642 (Version 1)
Quarter: 2018Q4

REPORT INFORMATION
  Report Type: Spontaneous
  Country: US (occurrence: US)
  Receive Date: 20181114
  Receipt Date: 20181114
  Transmission Date: 20190205
  Serious: Yes (Other)
  Sender: FDA-Public Use
  Company Number: US-AMGEN-USASP2018156954

PATIENT
  Age: 63 Year
  Sex: Female

DRUGS (1)
  1. ENBREL [Suspect]
     Active Substance: ETANERCEPT
     Indication: RHEUMATOID ARTHRITIS
     Dosage: 50 MG, QWK
     Route: 065

REACTIONS (28)
  - Pruritus [Unknown]
  - Eye pain [Unknown]
  - Pain in extremity [Unknown]
  - Dysgeusia [Unknown]
  - Confusional state [Unknown]
  - Seizure [Unknown]
  - Chills [Unknown]
  - Muscle tightness [Unknown]
  - Dizziness [Unknown]
  - Dyspnoea [Unknown]
  - Fatigue [Unknown]
  - Decreased appetite [Unknown]
  - Erythema [Unknown]
  - Sleep disorder [Unknown]
  - Heart rate increased [Unknown]
  - Weight decreased [Unknown]
  - Muscle spasms [Unknown]
  - Alopecia [Unknown]
  - Depression [Unknown]
  - Eye pruritus [Unknown]
  - Swollen tongue [Unknown]
  - Abdominal discomfort [Unknown]
  - Feeling abnormal [Unknown]
  - Rash [Unknown]
  - Cough [Unknown]
  - Pain [Unknown]
  - Asthenia [Unknown]
  - Nausea [Unknown]

NARRATIVE: CASE EVENT DATE: 2017
